FAERS Safety Report 10058578 (Version 1)
Quarter: 2014Q2

REPORT INFORMATION
  Report Type: Spontaneous
  Country: TR (occurrence: None)
  Receive Date: 20140402
  Receipt Date: 20140402
  Transmission Date: 20141212
  Serious: Yes (Other)
  Sender: FDA-Public Use
  Company Number: FK201401013

PATIENT
  Age: 15 Year
  Sex: Male

DRUGS (3)
  1. LEVETIRACETAM [Suspect]
     Indication: CONVULSION
     Dosage: (NOT OTHERWISE SPECIFIED)
     Route: 042
  2. VALPROATE [Suspect]
     Indication: CONVULSION
     Dosage: (NOT OTHERWISE SPECIFIED)
     Route: 042
  3. ANTIBIOTICS (ANTIBIOTICS) [Concomitant]

REACTIONS (1)
  - Hyperammonaemia [None]
